FAERS Safety Report 4878556-4 (Version None)
Quarter: 2006Q1

REPORT INFORMATION
  Report Type: 
  Country: None (occurrence: None)
  Receive Date: 20060112
  Receipt Date: 20050803
  Transmission Date: 20060701
  Serious: Yes (Other)
  Sender: FDA-Public Use
  Company Number: US-SOLVAY-00205002514

PATIENT
  Age: 11871 Day
  Sex: Female
  Weight: 70.9 kg

DRUGS (4)
  1. DOXYCYCLINE [Concomitant]
     Indication: ROSACEA
     Dosage: DAILY DOSE: 200 MILLIGRAM(S)
     Route: 048
     Dates: start: 20000101
  2. PROMETRIUM [Suspect]
     Indication: AMENORRHOEA
     Dosage: DAILY DOSE: 300 MILLIGRAM(S)
     Route: 048
     Dates: start: 20050719, end: 20050728
  3. CENTRUM MULTIVITAMINS [Concomitant]
     Indication: HYPOVITAMINOSIS
     Dosage: DAILY DOSE: 1 DOSAGE FORM
     Route: 048
     Dates: start: 20050501
  4. PREMARIN [Suspect]
     Indication: AMENORRHOEA
     Dosage: DAILY DOSE: .625 MILLIGRAM(S)
     Route: 048
     Dates: start: 20050629, end: 20050801

REACTIONS (1)
  - HYDROCEPHALUS [None]
